FAERS Safety Report 9123694 (Version 1)
Quarter: 2013Q1

REPORT INFORMATION
  Report Type: Spontaneous
  Country: US (occurrence: US)
  Receive Date: 20130114
  Receipt Date: 20130114
  Transmission Date: 20140127
  Serious: No
  Sender: FDA-Public Use
  Company Number: US-BAYER-2012-133378

PATIENT
  Sex: Female

DRUGS (1)
  1. GIANVI [Suspect]

REACTIONS (5)
  - Metrorrhagia [None]
  - Nausea [None]
  - Mood altered [None]
  - Medication error [None]
  - Drug ineffective [None]
